FAERS Safety Report 8805725 (Version 1)
Quarter: 2012Q4

REPORT INFORMATION
  Report Type: 
  Country: US (occurrence: US)
  Receive Date: 20120924
  Receipt Date: 20120924
  Transmission Date: 20130627
  Serious: No
  Sender: FDA-Public Use
  Company Number: US-009507513-1209USA006754

PATIENT

DRUGS (3)
  1. REBETOL [Suspect]
     Indication: HEPATITIS C
     Route: 048
  2. VICTRELIS [Suspect]
     Indication: HEPATITIS C
     Route: 048
  3. PEGINTRON [Suspect]
     Indication: HEPATITIS C

REACTIONS (1)
  - Neutropenia [Unknown]
